FAERS Safety Report 7449650-9 (Version None)
Quarter: 2011Q2

REPORT INFORMATION
  Report Type: 
  Country: None (occurrence: None)
  Receive Date: 20110502
  Receipt Date: 20110421
  Transmission Date: 20111010
  Serious: Yes (Other)
  Sender: FDA-Public Use
  Company Number: US-ELI_LILLY_AND_COMPANY-US201104006331

PATIENT
  Sex: Female
  Weight: 67.12 kg

DRUGS (7)
  1. BYETTA [Suspect]
     Dosage: 10 UG, BID
     Route: 058
  2. DIOVAN [Concomitant]
     Indication: HYPERTENSION
     Dosage: UNK, QD
     Route: 048
  3. DILTIAZEM [Concomitant]
     Indication: HYPERTENSION
     Dosage: UNK, QD
     Route: 048
  4. GABAPENTIN [Concomitant]
     Indication: PAIN
     Dosage: UNK
     Route: 048
  5. CRESTOR [Concomitant]
     Indication: BLOOD CHOLESTEROL INCREASED
     Dosage: UNK, QD
     Route: 048
  6. BYETTA [Suspect]
     Indication: TYPE 2 DIABETES MELLITUS
     Dosage: 5 UG, BID
     Route: 058
  7. BYETTA [Suspect]
     Dosage: 5 UG, BID
     Route: 058

REACTIONS (6)
  - HYPOGLYCAEMIC UNCONSCIOUSNESS [None]
  - BLOOD GLUCOSE DECREASED [None]
  - HYPOGLYCAEMIC SEIZURE [None]
  - DIARRHOEA [None]
  - NAUSEA [None]
  - WEIGHT DECREASED [None]
